FAERS Safety Report 4973203-5 (Version None)
Quarter: 2006Q2

REPORT INFORMATION
  Report Type: 
  Country: None (occurrence: None)
  Receive Date: 20060414
  Receipt Date: 20050816
  Transmission Date: 20061013
  Serious: Yes (Hospitalization)
  Sender: FDA-Public Use
  Company Number: US-MERCK-0508USA02902

PATIENT
  Age: 58 Year
  Sex: Female
  Weight: 107 kg

DRUGS (2)
  1. VIOXX [Suspect]
     Indication: BACK PAIN
     Route: 048
     Dates: start: 19970101, end: 20020101
  2. VIOXX [Suspect]
     Indication: ARTHRALGIA
     Route: 048
     Dates: start: 19970101, end: 20020101

REACTIONS (4)
  - CARDIAC FAILURE CONGESTIVE [None]
  - GASTRIC DISORDER [None]
  - POLYTRAUMATISM [None]
  - SPINAL DISORDER [None]
